FAERS Safety Report 5607492-0 (Version None)
Quarter: 2008Q1

REPORT INFORMATION
  Report Type: 
  Country: None (occurrence: None)
  Receive Date: 20080130
  Receipt Date: 20080124
  Transmission Date: 20080703
  Serious: Yes (Life-Threatening, Hospitalization, Other)
  Sender: FDA-Public Use
  Company Number: GB-NOVOPROD-270244

PATIENT
  Age: 77 Year
  Sex: Male

DRUGS (1)
  1. GLUCAGEN [Suspect]
     Indication: MUSCLE SPASMS
     Dosage: 1 MG, QD
     Route: 042
     Dates: start: 20071213, end: 20071213

REACTIONS (5)
  - COLD SWEAT [None]
  - DYSPNOEA [None]
  - FEELING HOT [None]
  - GENERAL PHYSICAL HEALTH DETERIORATION [None]
  - PANIC REACTION [None]
